FAERS Safety Report 8528514-3 (Version None)
Quarter: 2012Q3

REPORT INFORMATION
  Report Type: 
  Country: None (occurrence: None)
  Receive Date: 20120723
  Receipt Date: 20120710
  Transmission Date: 20120928
  Serious: Yes (Hospitalization, Other)
  Sender: FDA-Public Use
  Company Number: CO-AMGEN-COLSP2012034249

PATIENT
  Age: 63 Year
  Sex: Female

DRUGS (8)
  1. LOSARTAN POTASSIUM [Concomitant]
     Dosage: 50 MG, ONCE A DAY
  2. LYRICA [Concomitant]
     Dosage: 75 MG, TWICE A DAY
  3. ENBREL [Suspect]
     Indication: RHEUMATOID ARTHRITIS
     Dosage: 50 MG, WEEKLY
     Dates: start: 20120510
  4. ENBREL [Suspect]
     Dosage: 50 MG, WEEKLY
     Dates: start: 20120510
  5. HYDROCHLOROTHIAZIDE [Concomitant]
     Dosage: UNK
  6. CORTISONE ACETATE [Concomitant]
     Dosage: 8 MG ONCE A DAY
  7. CORTISONE ACETATE [Concomitant]
     Dosage: 16 MG ONCE A DAY
  8. TRAMADOL HYDROCHLORIDE [Concomitant]
     Dosage: UNK

REACTIONS (1)
  - PERICARDIAL EFFUSION [None]
